FAERS Safety Report 18430558 (Version 1)
Quarter: 2020Q4

REPORT INFORMATION
  Report Type: Spontaneous
  Country: US (occurrence: US)
  Receive Date: 20201027
  Receipt Date: 20201027
  Transmission Date: 20210114
  Serious: No
  Sender: FDA-Public Use
  Company Number: US-TEVA-2020-US-1841446

PATIENT
  Sex: Female

DRUGS (2)
  1. ESCITALOPRAM OXALATE. [Suspect]
     Active Substance: ESCITALOPRAM OXALATE
     Route: 065
  2. NATURE^S THYROID [Concomitant]

REACTIONS (2)
  - Weight increased [Unknown]
  - Expired product administered [Unknown]

NARRATIVE: CASE EVENT DATE: 202006
